FAERS Safety Report 5948778-X (Version None)
Quarter: 2008Q4

REPORT INFORMATION
  Report Type: 
  Country: None (occurrence: None)
  Receive Date: 20081111
  Receipt Date: 20081031
  Transmission Date: 20090506
  Serious: Yes (Hospitalization)
  Sender: FDA-Public Use
  Company Number: US-ROCHE-594972

PATIENT
  Sex: Female
  Weight: 52 kg

DRUGS (8)
  1. CEFTRIAXONE [Suspect]
     Dosage: OTHER INDICATION: GRADE 4 NEUTROPENIA, FORM: INFUSION
     Route: 065
     Dates: start: 20080806, end: 20080806
  2. DOCETAXEL [Suspect]
     Indication: BREAST CANCER
     Route: 042
     Dates: start: 20080619, end: 20080731
  3. DOCETAXEL [Suspect]
     Dosage: DOSE REDUCED
     Route: 042
  4. SUNITINIB MALATE [Suspect]
     Indication: BREAST CANCER
     Route: 048
     Dates: start: 20080619, end: 20080812
  5. SUNITINIB MALATE [Suspect]
     Dosage: DOSE REDUCED
     Route: 048
  6. HYTACAND [Concomitant]
  7. CELIPROLOL [Concomitant]
  8. ZOPHREN [Concomitant]
     Dates: start: 20080731, end: 20080731

REACTIONS (1)
  - HYPOTENSION [None]
